FAERS Safety Report 12860671 (Version 1)
Quarter: 2016Q4

REPORT INFORMATION
  Report Type: Spontaneous
  Country: US (occurrence: US)
  Receive Date: 20161019
  Receipt Date: 20161019
  Transmission Date: 20170207
  Serious: No
  Sender: FDA-Public Use
  Company Number: US-TEVA-702805USA

PATIENT
  Sex: Male

DRUGS (1)
  1. FENTORA [Suspect]
     Active Substance: FENTANYL CITRATE
     Indication: COLITIS ULCERATIVE
     Route: 065

REACTIONS (5)
  - Pain [Unknown]
  - Product use issue [Unknown]
  - Neck pain [Not Recovered/Not Resolved]
  - Abdominal pain [Unknown]
  - Colitis [Unknown]

NARRATIVE: CASE EVENT DATE: 20161012
